FAERS Safety Report 6531716-9 (Version None)
Quarter: 2009Q4

REPORT INFORMATION
  Report Type: 
  Country: None (occurrence: None)
  Receive Date: 20091222
  Receipt Date: 20091114
  Transmission Date: 20100525
  Serious: No
  Sender: FDA-Public Use
  Company Number: ALL1-2009-03678

PATIENT
  Age: 17 Year
  Sex: Male
  Weight: 78 kg

DRUGS (2)
  1. VYVANSE [Suspect]
     Indication: ATTENTION DEFICIT/HYPERACTIVITY DISORDER
     Dosage: 30 MG, 1X/DAY:QD, ORAL
     Route: 048
     Dates: start: 20091113, end: 20091114
  2. DOXYCYCLINE [Concomitant]

REACTIONS (5)
  - AGITATION [None]
  - DEPRESSED MOOD [None]
  - FEELING ABNORMAL [None]
  - OFF LABEL USE [None]
  - PALPITATIONS [None]
